FAERS Safety Report 6598615-8 (Version None)
Quarter: 2010Q1

REPORT INFORMATION
  Report Type: 
  Country: None (occurrence: None)
  Receive Date: 20100224
  Receipt Date: 20100217
  Transmission Date: 20100710
  Serious: Yes (Hospitalization)
  Sender: FDA-Public Use
  Company Number: US-BAYER-200937059NA

PATIENT
  Age: 31 Year
  Sex: Female
  Weight: 71 kg

DRUGS (1)
  1. YAZ [Suspect]
     Indication: CONTRACEPTION
     Route: 048
     Dates: start: 20080226, end: 20090324

REACTIONS (1)
  - DEEP VEIN THROMBOSIS [None]
